FAERS Safety Report 9674419 (Version 1)
Quarter: 2013Q4

REPORT INFORMATION
  Report Type: Spontaneous
  Country: US (occurrence: US)
  Receive Date: 20131107
  Receipt Date: 20131107
  Transmission Date: 20140711
  Serious: No
  Sender: FDA-Public Use
  Company Number: US-BIOGENIDEC-2013BI105577

PATIENT
  Sex: Male

DRUGS (3)
  1. AVONEX [Suspect]
     Indication: MULTIPLE SCLEROSIS
     Route: 030
     Dates: start: 19991101
  2. REBIF [Concomitant]
  3. COPAXONE [Concomitant]

REACTIONS (3)
  - Hepatic function abnormal [Recovered/Resolved]
  - Skin induration [Not Recovered/Not Resolved]
  - Influenza like illness [Recovered/Resolved]
